FAERS Safety Report 9608978 (Version 3)
Quarter: 2013Q4

REPORT INFORMATION
  Report Type: Spontaneous
  Country: FR (occurrence: FR)
  Receive Date: 20131009
  Receipt Date: 20131203
  Transmission Date: 20140711
  Serious: Yes (Death, Other)
  Sender: FDA-Public Use
  Company Number: FR-PFIZER INC-2013283051

PATIENT
  Age: 64 Year
  Sex: Male

DRUGS (12)
  1. ARACYTINE [Suspect]
     Indication: LYMPHOMA
     Dosage: UNK
     Route: 042
     Dates: start: 20130627
  2. ARACYTINE [Suspect]
     Dosage: UNK
     Route: 024
     Dates: start: 20130627
  3. METHOTREXATE SODIUM [Suspect]
     Indication: LYMPHOMA
     Dosage: UNK
     Route: 024
     Dates: start: 20130627
  4. METHOTREXATE SODIUM [Suspect]
     Dosage: UNK
     Route: 042
     Dates: start: 20130705
  5. DEPO-MEDROL [Suspect]
     Indication: LYMPHOMA
     Dosage: UNK
     Route: 024
     Dates: start: 20130627
  6. PRODILANTIN [Suspect]
     Dosage: UNK
     Dates: start: 2013
  7. CALCIUM FOLINATE [Suspect]
     Dosage: UNK
     Route: 042
     Dates: start: 20130705
  8. CALCIUM FOLINATE [Suspect]
     Dosage: UNK
     Route: 048
     Dates: start: 20130706
  9. KEPPRA [Suspect]
     Indication: EPILEPSY
     Dosage: UNK
     Dates: start: 20130602
  10. RIVOTRIL [Suspect]
     Dosage: UNK
     Dates: start: 20130531
  11. VIMPAT [Suspect]
     Dosage: UNK
     Dates: start: 2013
  12. ACICLOVIR [Concomitant]
     Dosage: 1500 MG, 3X/DAY
     Dates: start: 20130601

REACTIONS (9)
  - Bone marrow failure [Fatal]
  - Enterococcal bacteraemia [Fatal]
  - Melaena [Fatal]
  - Histiocytosis haematophagic [Fatal]
  - Hemiparesis [Unknown]
  - Status epilepticus [Unknown]
  - Encephalitis [Unknown]
  - Pneumonia [Unknown]
  - Pneumonia aspiration [Unknown]
